FAERS Safety Report 9130463 (Version 2)
Quarter: 2013Q2

REPORT INFORMATION
  Report Type: Spontaneous
  Country: FR (occurrence: FR)
  Receive Date: 20130301
  Receipt Date: 20130424
  Transmission Date: 20140414
  Serious: Yes (Other)
  Sender: FDA-Public Use
  Company Number: FR-SP-E2013-01590

PATIENT
  Age: 46 Year
  Sex: Male

DRUGS (5)
  1. VACCIN RABIQUE PASTEUR, POUDRE ET SOLVANT POUR SUSPENSION INJECTABLE [Suspect]
     Indication: IMMUNISATION
     Route: 030
     Dates: start: 20130126, end: 20130126
  2. IMOGAM RAGE 150 UI/ML [Suspect]
     Indication: IMMUNISATION
     Dosage: 1400 IU
     Route: 030
     Dates: start: 20130126, end: 20130126
  3. VACCIN RABIQUE PASTEUR, POUDRE ET SOLVANT POUR SUSPENSION INJECTABLE [Suspect]
     Indication: IMMUNISATION
     Route: 065
     Dates: start: 20130129, end: 20130129
  4. VACCIN RABIQUE PASTEUR, POUDRE ET SOLVANT POUR SUSPENSION INJECTABLE [Suspect]
     Indication: IMMUNISATION
     Route: 065
     Dates: start: 20130202, end: 20130202
  5. AUGMENTIN (AMOXICILLIN AND CLAVULANIC ACID) [Concomitant]
     Dates: start: 20130126, end: 20130201

REACTIONS (3)
  - Asthenia [Unknown]
  - Chills [Unknown]
  - Hot flush [Unknown]
